FAERS Safety Report 14248247 (Version 1)
Quarter: 2017Q4

REPORT INFORMATION
  Report Type: Spontaneous
  Country: GB (occurrence: GB)
  Receive Date: 20171204
  Receipt Date: 20171204
  Transmission Date: 20180321
  Serious: Yes (Hospitalization)
  Sender: FDA-Public Use
  Company Number: GB-B. BRAUN MEDICAL INC.-2036585

PATIENT
  Age: 79 Year
  Sex: Female

DRUGS (10)
  1. AMINOVEN [Suspect]
     Active Substance: AMINO ACIDS
     Route: 041
  2. SODIUM GLYCEROPHOSPHATE [Suspect]
     Active Substance: SODIUM GLYCEROPHOSPHATE
     Route: 041
  3. VITALIPID [Suspect]
     Active Substance: ERGOCALCIFEROL\PHYTONADIONE\RETINOL\TOCOPHEROL
     Route: 041
  4. ADDAMEL [Suspect]
     Active Substance: ELECTROLYTES NOS\MINERALS\SORBITOL
     Route: 041
  5. SOLUVIT N [Suspect]
     Active Substance: VITAMINS
     Route: 041
  6. SMOFLIPID [Suspect]
     Active Substance: FISH OIL\MEDIUM-CHAIN TRIGLYCERIDES\OLIVE OIL\SOYBEAN OIL
     Route: 041
  7. GLUCOSE [Suspect]
     Active Substance: DEXTROSE
     Route: 041
  8. SODIUM CHLORIDE. [Suspect]
     Active Substance: SODIUM CHLORIDE
     Route: 041
  9. WATER FOR INJECTION [Suspect]
     Active Substance: WATER
     Route: 041
  10. POTASSIUM CHLORIDE FOR INJECTION CONCENTRATE USP 0264-1940-20 [Suspect]
     Active Substance: POTASSIUM CHLORIDE
     Indication: PARENTERAL NUTRITION
     Route: 041

REACTIONS (7)
  - Jaundice [None]
  - Cholelithiasis [None]
  - Nausea [None]
  - Chest pain [None]
  - Dyspnoea [None]
  - Cardiac disorder [None]
  - Device related infection [None]
